FAERS Safety Report 9038335 (Version 1)
Quarter: 2013Q1

REPORT INFORMATION
  Report Type: Report from Study
  Country: US (occurrence: US)
  Receive Date: 20130130
  Receipt Date: 20130130
  Transmission Date: 20140127
  Serious: No
  Sender: FDA-Public Use
  Company Number: US-ABBOTT-12P-163-0951331-00

PATIENT
  Sex: Female

DRUGS (4)
  1. HUMIRA 40 MG/0.8 ML PEN [Suspect]
     Indication: ANAEMIA
     Route: 058
     Dates: start: 20120311
  2. HUMIRA 40 MG/0.8 ML PEN [Suspect]
     Indication: OSTEOARTHRITIS
     Route: 058
     Dates: start: 20120627
  3. HUMIRA 40 MG/0.8 ML PEN [Suspect]
     Indication: PROPHYLAXIS
  4. HUMIRA 40 MG/0.8 ML PEN [Suspect]
     Indication: KNEE ARTHROPLASTY

REACTIONS (4)
  - Sinusitis [Recovered/Resolved]
  - Oral candidiasis [Recovered/Resolved]
  - Oral candidiasis [Recovered/Resolved]
  - Vulvovaginal candidiasis [Recovered/Resolved]
